FAERS Safety Report 14096562 (Version 1)
Quarter: 2017Q4

REPORT INFORMATION
  Report Type: Spontaneous
  Country: FR (occurrence: FR)
  Receive Date: 20171017
  Receipt Date: 20171017
  Transmission Date: 20180321
  Serious: Yes (Hospitalization)
  Sender: FDA-Public Use
  Company Number: FR-ACCORD-059918

PATIENT
  Age: 71 Year
  Sex: Female

DRUGS (11)
  1. SERESTA [Concomitant]
     Active Substance: OXAZEPAM
     Dosage: 2 DOSAGE FORMS PER DAY
  2. PAROXETINE. [Concomitant]
     Active Substance: PAROXETINE
  3. EPIRUBICINE MYLAN [Suspect]
     Active Substance: EPIRUBICIN
     Indication: BREAST CANCER
     Route: 042
     Dates: start: 20170727, end: 20170727
  4. ENDOXAN [Suspect]
     Active Substance: CYCLOPHOSPHAMIDE
     Indication: BREAST CANCER
     Route: 042
     Dates: start: 20170727, end: 20170727
  5. FLUOROURACILE ACCORD [Suspect]
     Active Substance: FLUOROURACIL
     Indication: BREAST CANCER
     Route: 042
     Dates: start: 20170727, end: 20170727
  6. TERCIAN [Concomitant]
     Active Substance: CYAMEMAZINE
  7. INEXIUM [Concomitant]
     Active Substance: ESOMEPRAZOLE
     Dosage: 2 DOSAGE FORMS PER DAY
  8. LACTULOSE. [Concomitant]
     Active Substance: LACTULOSE
  9. URISPAS [Concomitant]
     Active Substance: FLAVOXATE HYDROCHLORIDE
     Dosage: 2 DOSAGE FORMS PER DAY
  10. ONDANSETRON [Concomitant]
     Active Substance: ONDANSETRON
     Dates: start: 20170727
  11. DEXAMETHASONE. [Concomitant]
     Active Substance: DEXAMETHASONE
     Dates: start: 20170727

REACTIONS (2)
  - Pancreatitis acute [Recovering/Resolving]
  - Agranulocytosis [Recovered/Resolved]

NARRATIVE: CASE EVENT DATE: 20170730
